FAERS Safety Report 6411996-0 (Version None)
Quarter: 2009Q4

REPORT INFORMATION
  Report Type: 
  Country: None (occurrence: None)
  Receive Date: 20091023
  Receipt Date: 20091014
  Transmission Date: 20100525
  Serious: Yes (Life-Threatening, Hospitalization)
  Sender: FDA-Public Use
  Company Number: JP-JNJFOC-20091005602

PATIENT
  Age: 57 Year
  Sex: Female

DRUGS (9)
  1. REMICADE [Suspect]
     Dosage: 3 DOSES
     Route: 042
     Dates: end: 20091014
  2. REMICADE [Suspect]
     Indication: RHEUMATOID ARTHRITIS
     Dosage: 3 DOSES
     Route: 042
     Dates: end: 20091014
  3. METHOTREXATE [Concomitant]
     Indication: RHEUMATOID ARTHRITIS
     Route: 048
  4. PREDNISOLONE [Concomitant]
     Route: 048
  5. LOXOPROFEN SODIUM [Concomitant]
     Route: 048
  6. BUCILLAMINE [Concomitant]
     Route: 048
  7. FAMOTIDINE [Concomitant]
     Indication: PROPHYLAXIS
     Route: 048
  8. CALONAL [Concomitant]
     Indication: PROPHYLAXIS
     Route: 048
  9. ALLEGRA [Concomitant]
     Indication: PROPHYLAXIS
     Route: 048

REACTIONS (3)
  - ANAPHYLACTIC REACTION [None]
  - INFUSION RELATED REACTION [None]
  - RESPIRATORY ARREST [None]
